FAERS Safety Report 4750942-2 (Version None)
Quarter: 2005Q3

REPORT INFORMATION
  Report Type: 
  Country: None (occurrence: None)
  Receive Date: 20050822
  Receipt Date: 20050810
  Transmission Date: 20060218
  Serious: Yes (Other)
  Sender: FDA-Public Use
  Company Number: 2005113672

PATIENT
  Age: 59 Year
  Sex: Female
  Weight: 61.2356 kg

DRUGS (1)
  1. FRESHBURST LISTERINME (METHOL, METHYL SALICYLATE, EUCALYPTOL, THYMOL) [Suspect]
     Indication: DENTAL DISORDER PROPHYLAXIS
     Dosage: 1/2 CAPFUL 1-3 TIMES PER DAY,ORAL TOPICAL
     Route: 061
     Dates: start: 20050701, end: 20050810

REACTIONS (2)
  - ABSCESS ORAL [None]
  - STOMATITIS [None]
